FAERS Safety Report 7342962-9 (Version None)
Quarter: 2011Q1

REPORT INFORMATION
  Report Type: 
  Country: None (occurrence: None)
  Receive Date: 20110310
  Receipt Date: 20110225
  Transmission Date: 20110831
  Serious: Yes (Hospitalization)
  Sender: FDA-Public Use
  Company Number: PHHY2010MX45380

PATIENT
  Age: 66 Year
  Sex: Female

DRUGS (5)
  1. SINTROM [Concomitant]
  2. ASPIRIN [Concomitant]
  3. ACLASTA [Suspect]
     Indication: OSTEOPOROSIS
     Dosage: 5 MG/100ML PER YEAR
     Dates: start: 20090301
  4. COZAAR [Concomitant]
  5. SPIRONOLACTONE [Concomitant]

REACTIONS (4)
  - ARRHYTHMIA [None]
  - PNEUMONIA [None]
  - PULMONARY OEDEMA [None]
  - CARDIAC VALVE DISEASE [None]
